FAERS Safety Report 21322553 (Version 1)
Quarter: 2022Q3

REPORT INFORMATION
  Report Type: Spontaneous
  Country: US (occurrence: None)
  Receive Date: 20220909
  Receipt Date: 20220909
  Transmission Date: 20221027
  Serious: Yes (Other)
  Sender: FDA-Public Use
  Company Number: None

PATIENT
  Age: 78 Year
  Sex: Male

DRUGS (2)
  1. DARATUMUMAB [Suspect]
     Active Substance: DARATUMUMAB
     Indication: Plasma cell myeloma
     Dosage: FREQUENCY : MONTHLY;?
     Route: 058
     Dates: start: 20211102, end: 20220816
  2. REVLIMID [Concomitant]
     Active Substance: LENALIDOMIDE
     Indication: Plasma cell myeloma
     Dosage: DAILY DAY1-21
     Dates: start: 20211102, end: 20220905

REACTIONS (2)
  - Neoplasm skin [None]
  - Basal cell carcinoma [None]

NARRATIVE: CASE EVENT DATE: 20220815
